FAERS Safety Report 20506980 (Version 2)
Quarter: 2022Q1

REPORT INFORMATION
  Report Type: Spontaneous
  Country: US (occurrence: US)
  Receive Date: 20220223
  Receipt Date: 20220308
  Transmission Date: 20220423
  Serious: No
  Sender: FDA-Public Use
  Company Number: US-Eisai Medical Research-EC-2022-108288

PATIENT
  Age: 35 Year
  Sex: Male

DRUGS (2)
  1. FYCOMPA [Suspect]
     Active Substance: PERAMPANEL
     Indication: Idiopathic generalised epilepsy
     Route: 048
  2. FYCOMPA [Suspect]
     Active Substance: PERAMPANEL
     Route: 048

REACTIONS (1)
  - Urinary incontinence [Not Recovered/Not Resolved]
